FAERS Safety Report 8295032-X (Version None)
Quarter: 2012Q2

REPORT INFORMATION
  Report Type: 
  Country: None (occurrence: None)
  Receive Date: 20120418
  Receipt Date: 20120411
  Transmission Date: 20120825
  Serious: Yes (Hospitalization)
  Sender: FDA-Public Use
  Company Number: CA-ELI_LILLY_AND_COMPANY-CA201204003504

PATIENT
  Age: 58 Year
  Sex: Female

DRUGS (6)
  1. BISOPROLOL FUMARATE [Concomitant]
     Route: 048
  2. PANTOPRAZOLE SODIUM [Concomitant]
     Route: 048
  3. ASPIRIN [Concomitant]
  4. PERINDOPRIL ERBUMINE [Concomitant]
     Route: 048
  5. EFFIENT [Suspect]
     Dosage: 60 MG, SINGLE
     Route: 048
  6. LIPITOR [Concomitant]
     Route: 048

REACTIONS (3)
  - CATHETER SITE HAEMORRHAGE [None]
  - DRUG ADMINISTRATION ERROR [None]
  - MEDICATION ERROR [None]
